FAERS Safety Report 21010601 (Version 1)
Quarter: 2022Q2

REPORT INFORMATION
  Report Type: Spontaneous
  Country: FR (occurrence: FR)
  Receive Date: 20220627
  Receipt Date: 20220627
  Transmission Date: 20220720
  Serious: Yes (Hospitalization)
  Sender: FDA-Public Use
  Company Number: None

PATIENT
  Age: 22 Year
  Sex: Female
  Weight: 76.5 kg

DRUGS (4)
  1. ALPRAZOLAM [Suspect]
     Active Substance: ALPRAZOLAM
     Dosage: UNK
     Route: 048
     Dates: start: 20220515, end: 20220515
  2. CYAMEMAZINE [Suspect]
     Active Substance: CYAMEMAZINE
     Dosage: 14 DF
     Route: 048
     Dates: start: 20220515, end: 20220515
  3. ACETAMINOPHEN [Suspect]
     Active Substance: ACETAMINOPHEN
     Dosage: 44 DF (500 MG)
     Route: 048
     Dates: start: 20220515, end: 20220515
  4. IBUPROFEN [Suspect]
     Active Substance: IBUPROFEN
     Dosage: 30 DF
     Route: 048
     Dates: start: 20220515, end: 20220515

REACTIONS (3)
  - Intentional overdose [Recovered/Resolved]
  - Somnolence [Recovered/Resolved]
  - Poisoning deliberate [Recovered/Resolved]

NARRATIVE: CASE EVENT DATE: 20220515
